FAERS Safety Report 8135773-8 (Version None)
Quarter: 2012Q1

REPORT INFORMATION
  Report Type: 
  Country: None (occurrence: None)
  Receive Date: 20120214
  Receipt Date: 20120130
  Transmission Date: 20120608
  Serious: Yes (Other)
  Sender: FDA-Public Use
  Company Number: US-WATSON-2012-01464

PATIENT
  Sex: Female
  Weight: 74.83 kg

DRUGS (9)
  1. PRISTIQ [Suspect]
     Indication: INSOMNIA
  2. XANAX [Suspect]
     Indication: INSOMNIA
     Dosage: UNK
  3. ZOFRAN [Suspect]
     Indication: NAUSEA
  4. PROMETHAZINE [Suspect]
     Indication: NAUSEA
  5. FIORICET [Suspect]
     Indication: HEADACHE
     Dosage: UNK
     Route: 048
  6. ZOFRAN [Suspect]
     Indication: VOMITING PROJECTILE
     Dosage: UNK
  7. PRISTIQ [Suspect]
     Indication: STRESS AT WORK
     Dosage: 100 MG, DAILY
     Dates: start: 20110601
  8. PROMETHAZINE [Suspect]
     Indication: VOMITING PROJECTILE
     Dosage: UNK
  9. LORTAB [Suspect]
     Indication: HEADACHE
     Dosage: UNK

REACTIONS (10)
  - MEMORY IMPAIRMENT [None]
  - HEADACHE [None]
  - DISTURBANCE IN ATTENTION [None]
  - NERVOUS SYSTEM DISORDER [None]
  - DRUG INEFFECTIVE [None]
  - VOMITING PROJECTILE [None]
  - AGGRESSION [None]
  - DRUG ADMINISTRATION ERROR [None]
  - ANGER [None]
  - NAUSEA [None]
